FAERS Safety Report 7878956-4 (Version None)
Quarter: 2011Q4

REPORT INFORMATION
  Report Type: 
  Country: None (occurrence: None)
  Receive Date: 20111101
  Receipt Date: 20111021
  Transmission Date: 20120403
  Serious: No
  Sender: FDA-Public Use
  Company Number: PHHY2009JP25105

PATIENT
  Age: 70 Year
  Sex: Male

DRUGS (5)
  1. TASIGNA [Suspect]
     Indication: CHRONIC MYELOID LEUKAEMIA
     Dosage: 800 MG/DAY
     Route: 048
     Dates: start: 20090611
  2. SELBEX [Concomitant]
     Dosage: 150 MG, UNK
     Route: 048
  3. OMEPRAZOLE [Concomitant]
     Dosage: 20 MG, UNK
     Route: 048
  4. SULFAMETHOXAZOLE [Concomitant]
     Dosage: 1 G, UNK
     Route: 048
  5. PREDNISOLONE [Concomitant]
     Dosage: 60 MG, UNK
     Route: 048

REACTIONS (1)
  - VENTRICULAR EXTRASYSTOLES [None]
